FAERS Safety Report 21400831 (Version 1)
Quarter: 2022Q4

REPORT INFORMATION
  Report Type: Other
  Country: CN (occurrence: None)
  Receive Date: 20221003
  Receipt Date: 20221003
  Transmission Date: 20230112
  Serious: Yes (Other)
  Sender: FDA-Public Use
  Company Number: CN-ROCHE-1994042

PATIENT
  Age: 54 Year
  Sex: Female
  Weight: 46 kg

DRUGS (2)
  1. AVASTIN [Suspect]
     Active Substance: BEVACIZUMAB
     Indication: Lung adenocarcinoma
     Dosage: FORM OF ADMIN: 100 MG, INJECTION
     Route: 041
     Dates: start: 20170315
  2. AVASTIN [Suspect]
     Active Substance: BEVACIZUMAB
     Dosage: FORM OF ADMIN: 100 MG, INJECTION
     Route: 041
     Dates: start: 20180607

REACTIONS (10)
  - Headache [Unknown]
  - Protein urine present [Unknown]
  - Nasopharyngitis [Unknown]
  - Dizziness [Unknown]
  - Vomiting [Unknown]
  - Dyspnoea [Unknown]
  - Drug ineffective [Unknown]
  - Neoplasm progression [Not Recovered/Not Resolved]
  - Gingival bleeding [Unknown]
  - Metastases to central nervous system [Not Recovered/Not Resolved]

NARRATIVE: CASE EVENT DATE: 20190605
